FAERS Safety Report 8854086 (Version 1)
Quarter: 2012Q4

REPORT INFORMATION
  Report Type: Spontaneous
  Country: US (occurrence: None)
  Receive Date: 20121023
  Receipt Date: 20121023
  Transmission Date: 20130627
  Serious: No
  Sender: FDA-Public Use
  Company Number: None

PATIENT
  Age: 53 Year
  Sex: Female
  Weight: 99.79 kg

DRUGS (1)
  1. PROCHLORPERAZINE [Suspect]
     Dosage: 10 mg every 4 hours IV
     Route: 042
     Dates: start: 20121012, end: 20121012

REACTIONS (1)
  - Malaise [None]
